FAERS Safety Report 4777911-0 (Version None)
Quarter: 2005Q3

REPORT INFORMATION
  Report Type: 
  Country: None (occurrence: None)
  Receive Date: 20050921
  Receipt Date: 20050908
  Transmission Date: 20060218
  Serious: Yes (Death)
  Sender: FDA-Public Use
  Company Number: 2005JP001104

PATIENT
  Age: 50 Year
  Sex: Male
  Weight: 62.2 kg

DRUGS (12)
  1. PROGRAF [Suspect]
     Indication: RENAL TRANSPLANT
     Dosage: SEE IMAGE
     Route: 048
     Dates: start: 20010314, end: 20010315
  2. PROGRAF [Suspect]
     Indication: RENAL TRANSPLANT
     Dosage: SEE IMAGE
     Route: 048
     Dates: start: 20010316, end: 20010323
  3. PROGRAF [Suspect]
     Indication: RENAL TRANSPLANT
     Dosage: SEE IMAGE
     Route: 048
     Dates: start: 20010311, end: 20010513
  4. PROGRAF [Suspect]
     Indication: RENAL TRANSPLANT
     Dosage: SEE IMAGE
     Route: 048
     Dates: start: 20010331, end: 20030606
  5. CELLCEPT [Suspect]
     Indication: RENAL TRANSPLANT
     Dosage: 750.00 MG, BID, ORAL
     Route: 048
     Dates: start: 20010316, end: 20030423
  6. PREDNISOLONE [Suspect]
     Indication: RENAL TRANSPLANT
     Dosage: SEE IMAGE
     Route: 042
     Dates: start: 20010322, end: 20010228
  7. PREDNISOLONE [Suspect]
     Indication: RENAL TRANSPLANT
     Dosage: SEE IMAGE
     Route: 042
     Dates: start: 20010315, end: 20010321
  8. PREDNISOLONE [Suspect]
     Indication: RENAL TRANSPLANT
     Dosage: SEE IMAGE
     Route: 042
     Dates: start: 20010329, end: 20010404
  9. PREDNISOLONE [Suspect]
     Indication: RENAL TRANSPLANT
     Dosage: SEE IMAGE
     Route: 042
     Dates: start: 20010405, end: 20010411
  10. PREDNISOLONE [Suspect]
     Indication: RENAL TRANSPLANT
     Dosage: SEE IMAGE
     Route: 042
     Dates: start: 20010412, end: 20030606
  11. PREDNISOLONE [Suspect]
     Indication: RENAL TRANSPLANT
     Dosage: SEE IMAGE
     Route: 042
     Dates: start: 20030607, end: 20030702
  12. NIVADIL (NIVADIPINE) TABLET [Concomitant]

REACTIONS (9)
  - CANDIDA PNEUMONIA [None]
  - DISEASE RECURRENCE [None]
  - DISSEMINATED INTRAVASCULAR COAGULATION [None]
  - IMMUNOSUPPRESSION [None]
  - PNEUMOCYSTIS JIROVECI PNEUMONIA [None]
  - PNEUMONIA STAPHYLOCOCCAL [None]
  - RESPIRATORY FAILURE [None]
  - SEPTIC SHOCK [None]
  - SHOCK [None]
